FAERS Safety Report 5811621-3 (Version None)
Quarter: 2008Q3

REPORT INFORMATION
  Report Type: 
  Country: None (occurrence: None)
  Receive Date: 20080711
  Receipt Date: 20080711
  Transmission Date: 20090109
  Serious: Yes (Other)
  Sender: FDA-Public Use
  Company Number: None

PATIENT
  Age: 46 Year
  Sex: Female
  Weight: 49.8957 kg

DRUGS (3)
  1. PROGESTIN INJ [Suspect]
     Indication: CONTRACEPTION
     Dosage: 1 SHOT MUSCLE
     Dates: start: 20020605
  2. PROPYLEN [Concomitant]
  3. GLUCOL [Concomitant]

REACTIONS (6)
  - ABDOMINAL DISTENSION [None]
  - CANDIDIASIS [None]
  - HOT FLUSH [None]
  - ILL-DEFINED DISORDER [None]
  - INSOMNIA [None]
  - NERVOUSNESS [None]
